FAERS Safety Report 9425326 (Version 2)
Quarter: 2014Q2

REPORT INFORMATION
  Report Type: Spontaneous
  Country: IT (occurrence: IT)
  Receive Date: 20130729
  Receipt Date: 20140407
  Transmission Date: 20141212
  Serious: Yes (Hospitalization)
  Sender: FDA-Public Use
  Company Number: IT-TEVA-420497ISR

PATIENT
  Age: 66 Year
  Sex: Male
  Weight: 60 kg

DRUGS (4)
  1. DOXORUBICINA TEVA [Suspect]
     Indication: B-CELL LYMPHOMA
     Dosage: 50 MG/M2 CYCLICAL
     Route: 042
     Dates: start: 20130607, end: 20130607
  2. CICLOFOSFAMIDE [Suspect]
     Dosage: 750 MG/M2 CYCLICAL
     Route: 042
     Dates: start: 20130607, end: 20130607
  3. VINCRISTINA TEVA [Concomitant]
     Dosage: 2 MILLIGRAM DAILY;
     Route: 042
     Dates: start: 20130607, end: 20130607
  4. MABTHERA [Concomitant]
     Dosage: 375 MG/M2 DAILY;
     Route: 042
     Dates: start: 20130607, end: 20130607

REACTIONS (1)
  - Febrile neutropenia [Recovered/Resolved]
